FAERS Safety Report 11641083 (Version 2)
Quarter: 2015Q4

REPORT INFORMATION
  Report Type: Spontaneous
  Country: BE (occurrence: BE)
  Receive Date: 20151019
  Receipt Date: 20151028
  Transmission Date: 20160304
  Serious: Yes (Hospitalization)
  Sender: FDA-Public Use
  Company Number: BE-SA-2015SA162225

PATIENT
  Age: 60 Year
  Sex: Female
  Weight: 74 kg

DRUGS (4)
  1. ZANIDIP [Concomitant]
     Active Substance: LERCANIDIPINE HYDROCHLORIDE
     Indication: HYPERTENSION
  2. AUBAGIO [Suspect]
     Active Substance: TERIFLUNOMIDE
     Indication: MULTIPLE SCLEROSIS
     Route: 048
     Dates: start: 201505
  3. LOORTAN [Concomitant]
     Indication: HYPERTENSION
  4. NOBITEN [Concomitant]
     Indication: HYPERTENSION

REACTIONS (3)
  - Speech disorder [Recovered/Resolved]
  - Ischaemic stroke [Recovered/Resolved]
  - Hemiparesis [Recovered/Resolved]

NARRATIVE: CASE EVENT DATE: 20151009
